FAERS Safety Report 10402040 (Version 1)
Quarter: 2014Q3

REPORT INFORMATION
  Report Type: Spontaneous
  Country: US (occurrence: US)
  Receive Date: 20140822
  Receipt Date: 20140822
  Transmission Date: 20150326
  Serious: Yes (Life-Threatening)
  Sender: FDA-Public Use
  Company Number: US-MYLAN-2014M1001616

PATIENT

DRUGS (13)
  1. FOSPHENYTOIN [Suspect]
     Active Substance: FOSPHENYTOIN\FOSPHENYTOIN SODIUM
     Dosage: TOTAL OF 30 MG/KG
     Route: 065
  2. FOSPHENYTOIN [Suspect]
     Active Substance: FOSPHENYTOIN\FOSPHENYTOIN SODIUM
     Indication: GENERALISED TONIC-CLONIC SEIZURE
     Dosage: 20 MG/KG, BOLUS DOSE
     Route: 042
  3. LEVOCARNITINE. [Concomitant]
     Active Substance: LEVOCARNITINE
     Indication: MELAS SYNDROME
     Route: 065
  4. MIDAZOLAM [Suspect]
     Active Substance: MIDAZOLAM\MIDAZOLAM HYDROCHLORIDE
     Indication: GENERALISED TONIC-CLONIC SEIZURE
     Dosage: TITRATED TO 0.3 MG/KG/H
     Route: 041
  5. ARGININE [Concomitant]
     Active Substance: ARGININE
     Indication: MELAS SYNDROME
     Dosage: 0.6 G/KG/D AFTER A BOLUS OF 0.6 G/KG
  6. LEVETIRACETAM. [Suspect]
     Active Substance: LEVETIRACETAM
     Indication: GENERALISED TONIC-CLONIC SEIZURE
     Dosage: 40MG/KG
     Route: 042
  7. UBIDECARENONE [Concomitant]
     Active Substance: UBIDECARENONE
     Indication: MELAS SYNDROME
     Route: 065
  8. SEVOFLURANE. [Concomitant]
     Active Substance: SEVOFLURANE
     Indication: SEDATIVE THERAPY
     Dosage: 1.8%-2.5%
  9. SODIUM CHLORIDE. [Concomitant]
     Active Substance: SODIUM CHLORIDE
     Dosage: TOTAL OF 12 ML/KG
     Route: 065
  10. PYRIDOXINE [Concomitant]
     Active Substance: PYRIDOXINE
     Indication: MELAS SYNDROME
     Route: 065
  11. PHENOBARBITAL. [Suspect]
     Active Substance: PHENOBARBITAL
     Indication: GENERALISED TONIC-CLONIC SEIZURE
     Dosage: 20 MG/KG
     Route: 065
  12. CARNITINE [Concomitant]
     Active Substance: CARNITINE
     Indication: MELAS SYNDROME
     Route: 065
  13. PROPOFOL. [Suspect]
     Active Substance: PROPOFOL
     Indication: SEDATIVE THERAPY
     Dosage: 1.25 MG/KG
     Route: 042

REACTIONS (4)
  - Haemodynamic instability [Unknown]
  - Condition aggravated [Recovered/Resolved]
  - Respiratory failure [Unknown]
  - MELAS syndrome [Recovered/Resolved]
